FAERS Safety Report 25593713 (Version 1)
Quarter: 2025Q3

REPORT INFORMATION
  Report Type: Spontaneous
  Country: US (occurrence: US)
  Receive Date: 20250722
  Receipt Date: 20250722
  Transmission Date: 20251020
  Serious: Yes (Other)
  Sender: ALEXION PHARMACEUTICALS
  Company Number: US-ASTRAZENECA-202507GLO012349US

PATIENT
  Sex: Male

DRUGS (15)
  1. NEXIUM [Suspect]
     Active Substance: ESOMEPRAZOLE MAGNESIUM
     Route: 065
  2. NEXIUM [Suspect]
     Active Substance: ESOMEPRAZOLE MAGNESIUM
  3. NEXIUM [Suspect]
     Active Substance: ESOMEPRAZOLE MAGNESIUM
  4. NEXIUM [Suspect]
     Active Substance: ESOMEPRAZOLE MAGNESIUM
  5. MELOXICAM [Concomitant]
     Active Substance: MELOXICAM
  6. AMLODIPINE [Concomitant]
     Active Substance: AMLODIPINE BESYLATE
  7. ONDANSETRON [Concomitant]
     Active Substance: ONDANSETRON
  8. AZITHROMYCIN [Concomitant]
     Active Substance: AZITHROMYCIN
  9. CITALOPRAM [Concomitant]
     Active Substance: CITALOPRAM
  10. ASPIRIN [Concomitant]
     Active Substance: ASPIRIN
  11. OXYCODONE [Concomitant]
     Active Substance: OXYCODONE
  12. GABAPENTIN [Concomitant]
     Active Substance: GABAPENTIN
  13. DOCUSATE [Concomitant]
     Active Substance: DOCUSATE
  14. AMITIZA [Concomitant]
     Active Substance: LUBIPROSTONE
  15. OMEPRAZOLE [Concomitant]
     Active Substance: OMEPRAZOLE

REACTIONS (1)
  - Gastric cancer [Unknown]
